FAERS Safety Report 11735179 (Version 3)
Quarter: 2016Q1

REPORT INFORMATION
  Report Type: Spontaneous
  Country: US (occurrence: US)
  Receive Date: 20151113
  Receipt Date: 20160212
  Transmission Date: 20160525
  Serious: Yes (Death, Hospitalization)
  Sender: FDA-Public Use
  Company Number: US-BEH-2015055654

PATIENT
  Age: 79 Year
  Sex: Female
  Weight: 50 kg

DRUGS (43)
  1. PREDNISONE. [Concomitant]
     Active Substance: PREDNISONE
  2. TYLENOL [Concomitant]
     Active Substance: ACETAMINOPHEN
  3. GLUCOSAMINE-CHONDR [Concomitant]
  4. HYDROMORPHONE [Concomitant]
     Active Substance: HYDROMORPHONE
  5. CALCIUM [Concomitant]
     Active Substance: CALCIUM
  6. FISH OIL [Concomitant]
     Active Substance: FISH OIL
  7. LORAZEPAM. [Concomitant]
     Active Substance: LORAZEPAM
  8. VENTOLIN [Concomitant]
     Active Substance: ALBUTEROL SULFATE
  9. FLEXERIL [Concomitant]
     Active Substance: CYCLOBENZAPRINE HYDROCHLORIDE
  10. CORRECTOL NOS [Concomitant]
     Active Substance: BISACODYL OR DOCUSATE SODIUM
  11. MULTIVITAMINS [Concomitant]
     Active Substance: VITAMINS
  12. GUAIFENESIN. [Concomitant]
     Active Substance: GUAIFENESIN
  13. OXYGEN. [Concomitant]
     Active Substance: OXYGEN
  14. SERTRALINE [Concomitant]
     Active Substance: SERTRALINE HYDROCHLORIDE
  15. COLACE [Concomitant]
     Active Substance: DOCUSATE SODIUM
  16. PROTONIX [Concomitant]
     Active Substance: PANTOPRAZOLE SODIUM
  17. ZOLOFT [Concomitant]
     Active Substance: SERTRALINE HYDROCHLORIDE
  18. ZEMAIRA [Suspect]
     Active Substance: .ALPHA.1-PROTEINASE INHIBITOR HUMAN
     Indication: ALPHA-1 ANTI-TRYPSIN DEFICIENCY
     Route: 042
     Dates: start: 20120104
  19. LMX [Concomitant]
     Active Substance: LIDOCAINE
  20. TRAMADOL. [Concomitant]
     Active Substance: TRAMADOL
  21. HYDROCODONE-ACETAMINOPHIN [Concomitant]
  22. SYMBICORT [Concomitant]
     Active Substance: BUDESONIDE\FORMOTEROL FUMARATE DIHYDRATE
  23. LIDODERM [Concomitant]
     Active Substance: LIDOCAINE
  24. EPIPEN [Concomitant]
     Active Substance: EPINEPHRINE
  25. ZITHROMAX [Concomitant]
     Active Substance: AZITHROMYCIN DIHYDRATE
  26. MS CONTIN [Concomitant]
     Active Substance: MORPHINE SULFATE
  27. VITAMIN B [Concomitant]
     Active Substance: VITAMIN B
  28. ZEMAIRA [Suspect]
     Active Substance: .ALPHA.1-PROTEINASE INHIBITOR HUMAN
     Route: 042
     Dates: start: 20070611
  29. DIPHENHYDRAMINE. [Concomitant]
     Active Substance: DIPHENHYDRAMINE
  30. SODIUM CHLORIDE. [Concomitant]
     Active Substance: SODIUM CHLORIDE
  31. ASPIRIN. [Concomitant]
     Active Substance: ASPIRIN
  32. PROMETHAZINE [Concomitant]
     Active Substance: PROMETHAZINE\PROMETHAZINE HYDROCHLORIDE
  33. VITAMIN C [Concomitant]
     Active Substance: ASCORBIC ACID
  34. DUONEB [Concomitant]
     Active Substance: ALBUTEROL SULFATE\IPRATROPIUM BROMIDE
  35. SPIRIVA [Concomitant]
     Active Substance: TIOTROPIUM BROMIDE MONOHYDRATE
  36. VITAMIN D3 [Concomitant]
     Active Substance: CHOLECALCIFEROL
  37. LEVAQUIN [Concomitant]
     Active Substance: LEVOFLOXACIN
  38. DILAUDID [Concomitant]
     Active Substance: HYDROMORPHONE HYDROCHLORIDE
  39. OCUVITE [Concomitant]
     Active Substance: VITAMINS
  40. FIBER GUMMIES [Concomitant]
  41. NYSTATIN. [Concomitant]
     Active Substance: NYSTATIN
  42. IPRATROPIUM ALBUTEROL [Concomitant]
     Active Substance: ALBUTEROL\IPRATROPIUM
  43. IBUPROFEN. [Concomitant]
     Active Substance: IBUPROFEN

REACTIONS (4)
  - Dehydration [Fatal]
  - Chronic obstructive pulmonary disease [Fatal]
  - Respiratory disorder [Fatal]
  - Alpha-1 anti-trypsin deficiency [Fatal]

NARRATIVE: CASE EVENT DATE: 20151123
